FAERS Safety Report 21999443 (Version 1)
Quarter: 2023Q1

REPORT INFORMATION
  Report Type: Spontaneous
  Country: IN (occurrence: IN)
  Receive Date: 20230216
  Receipt Date: 20230216
  Transmission Date: 20230417
  Serious: Yes (Hospitalization)
  Sender: FDA-Public Use
  Company Number: IN-MYLANLABS-2023M1016703

PATIENT
  Age: 40 Year
  Sex: Male

DRUGS (5)
  1. PACLITAXEL [Suspect]
     Active Substance: PACLITAXEL
     Indication: Lip and/or oral cavity cancer
     Dosage: UNK
     Route: 065
     Dates: start: 201912, end: 202004
  2. FLUOROURACIL [Suspect]
     Active Substance: FLUOROURACIL
     Indication: Lip and/or oral cavity cancer
     Dosage: UNK
     Route: 065
     Dates: start: 201912, end: 202004
  3. METHOTREXATE [Suspect]
     Active Substance: METHOTREXATE
     Indication: Lip and/or oral cavity cancer
     Dosage: UNK
     Route: 065
     Dates: start: 201912, end: 202004
  4. METHOTREXATE [Suspect]
     Active Substance: METHOTREXATE
     Dosage: LOW-DOSE METHOTREXATE
     Route: 065
  5. GEFITINIB [Suspect]
     Active Substance: GEFITINIB
     Indication: Lip and/or oral cavity cancer
     Dosage: UNK
     Route: 065

REACTIONS (1)
  - Therapy non-responder [Unknown]
